FAERS Safety Report 5417236-3 (Version None)
Quarter: 2007Q3

REPORT INFORMATION
  Report Type: 
  Country: None (occurrence: None)
  Receive Date: 20070816
  Receipt Date: 20070814
  Transmission Date: 20080115
  Serious: Yes (Death, Other)
  Sender: FDA-Public Use
  Company Number: US-SHR-US-2007-006375

PATIENT
  Age: 44 Year
  Sex: Female
  Weight: 90.249 kg

DRUGS (43)
  1. MAGNEVIST [Suspect]
     Indication: NUCLEAR MAGNETIC RESONANCE IMAGING
     Dosage: UNK, 1 DOSE
     Route: 042
     Dates: start: 19990210, end: 19990210
  2. MAGNEVIST [Suspect]
     Dosage: UNK, 1 DOSE
     Route: 042
     Dates: start: 19990217, end: 19990217
  3. MAGNEVIST [Suspect]
     Dosage: UNK, 1 DOSE
     Route: 042
     Dates: start: 19990304, end: 19990304
  4. MAGNEVIST [Suspect]
     Dosage: UNK, 1 DOSE
     Route: 042
     Dates: start: 19990319, end: 19990319
  5. MAGNEVIST [Suspect]
     Dosage: UNK, 1 DOSE
     Route: 042
     Dates: start: 19990328, end: 19990328
  6. MAGNEVIST [Suspect]
     Dosage: UNK, 1 DOSE
     Route: 042
     Dates: start: 19990504, end: 19990504
  7. MAGNEVIST [Suspect]
     Dosage: UNK, 1 DOSE
     Route: 042
     Dates: start: 20000125, end: 20000125
  8. MAGNEVIST [Suspect]
     Dosage: UNK, 1 DOSE
     Route: 042
     Dates: start: 20040618, end: 20040618
  9. COUMADIN [Concomitant]
  10. ATROVENT [Concomitant]
  11. PREDNISONE TAB [Concomitant]
  12. TORSEMIDE [Concomitant]
  13. NEURONTIN [Concomitant]
  14. SINGULAIR [Concomitant]
  15. ADVAIR DISKUS 100/50 [Concomitant]
  16. ZANTAC 150 [Concomitant]
  17. ZOLOFT [Concomitant]
  18. RENAGEL [Concomitant]
     Dosage: 800 MG, 3X/DAY
  19. K-DUR 10 [Concomitant]
  20. EPOGEN [Concomitant]
     Dosage: UNK, 2X/WEEK
     Route: 058
  21. BACTRIM DS [Concomitant]
  22. PROCRIT [Concomitant]
  23. SENNA [Concomitant]
  24. NEPHROCAPS [Concomitant]
  25. DILAUDID [Concomitant]
  26. ALBUTEROL [Concomitant]
  27. ATIVAN [Concomitant]
  28. MAALOX                                  /USA/ [Concomitant]
  29. DULCOLAX [Concomitant]
  30. ONDANSETRON HCL [Concomitant]
  31. COMPAZINE [Concomitant]
  32. AMIODARONE HCL [Concomitant]
  33. SEROQUEL [Concomitant]
  34. VASOPRESSIN AND ANALOGUES [Concomitant]
  35. HYDROCORTISONE [Concomitant]
  36. MIDODRINE [Concomitant]
  37. NEXIUM [Concomitant]
  38. NOREPINEPHRINE [Concomitant]
  39. ARANESP [Concomitant]
     Dosage: 40 A?G, 1X/WEEK
     Route: 058
  40. INSULIN [Concomitant]
  41. FISH OIL [Concomitant]
  42. LIDODERM [Concomitant]
  43. MIRENA [Concomitant]

REACTIONS (2)
  - NEPHROGENIC SYSTEMIC FIBROSIS [None]
  - SEPSIS [None]
